FAERS Safety Report 4524186-3 (Version None)
Quarter: 2004Q4

REPORT INFORMATION
  Report Type: 
  Country: None (occurrence: None)
  Receive Date: 20041119
  Receipt Date: 20041015
  Transmission Date: 20050328
  Serious: No
  Sender: FDA-Public Use
  Company Number: PHEH2004US11110

PATIENT
  Age: 76 Year
  Sex: Female

DRUGS (7)
  1. ZELNORM [Suspect]
     Indication: ABDOMINAL DISCOMFORT
     Dosage: 2 MG, BID,
     Dates: start: 20040913
  2. PREVACID [Suspect]
     Indication: GASTROOESOPHAGEAL REFLUX DISEASE
     Dates: start: 20040901, end: 20041011
  3. COZAAR [Concomitant]
  4. HYDROXYZINE [Concomitant]
  5. ELMIRON [Concomitant]
  6. PREMARIN [Concomitant]
  7. NEXIUM [Concomitant]

REACTIONS (2)
  - ALOPECIA [None]
  - HYPOTRICHOSIS [None]
